FAERS Safety Report 5524328-7 (Version None)
Quarter: 2007Q4

REPORT INFORMATION
  Report Type: 
  Country: None (occurrence: None)
  Receive Date: 20071121
  Receipt Date: 20071112
  Transmission Date: 20080405
  Serious: Yes (Life-Threatening, Hospitalization)
  Sender: FDA-Public Use
  Company Number: GB-PFIZER INC-2007095612

PATIENT
  Age: 54 Year

DRUGS (6)
  1. SULFASALAZINE [Suspect]
     Indication: RHEUMATOID ARTHRITIS
     Route: 048
     Dates: start: 20070727, end: 20070904
  2. AMLODIPINE [Concomitant]
     Route: 048
     Dates: start: 20010101
  3. ACETYLSALICYLIC ACID SRT [Concomitant]
     Route: 048
     Dates: start: 20010101
  4. ATENOLOL [Concomitant]
     Route: 048
     Dates: start: 20010101
  5. ATORVASTATIN CALCIUM [Concomitant]
     Route: 048
  6. DICLOFENAC SODIUM [Concomitant]
     Route: 048

REACTIONS (2)
  - AGRANULOCYTOSIS [None]
  - PSEUDOMONAL SEPSIS [None]
